FAERS Safety Report 20430259 (Version 3)
Quarter: 2022Q2

REPORT INFORMATION
  Report Type: Spontaneous
  Country: AT (occurrence: AT)
  Receive Date: 20220204
  Receipt Date: 20220407
  Transmission Date: 20220721
  Serious: Yes (Other)
  Sender: FDA-Public Use
  Company Number: AT-009507513-2202AUT000807

PATIENT
  Age: 64 Year
  Sex: Male

DRUGS (3)
  1. SUGAMMADEX SODIUM [Suspect]
     Active Substance: SUGAMMADEX SODIUM
     Indication: Neuromuscular blockade reversal
     Dosage: 1.82 MILLIGRAM/KILOGRAM
  2. ROCURONIUM BROMIDE [Concomitant]
     Active Substance: ROCURONIUM BROMIDE
     Indication: Gastrostomy
     Dosage: 0.91 MILLIGRAM/KILOGRAM
  3. ROCURONIUM BROMIDE [Concomitant]
     Active Substance: ROCURONIUM BROMIDE
     Indication: Neuromuscular blockade

REACTIONS (1)
  - Drug ineffective [Unknown]
